FAERS Safety Report 7702179-2 (Version None)
Quarter: 2011Q3

REPORT INFORMATION
  Report Type: 
  Country: None (occurrence: None)
  Receive Date: 20110822
  Receipt Date: 20110808
  Transmission Date: 20111222
  Serious: Yes (Hospitalization)
  Sender: FDA-Public Use
  Company Number: US-BAYER-2011-071465

PATIENT
  Age: 76 Year
  Sex: Male

DRUGS (10)
  1. NITRATES (NITRATE NOS) [Concomitant]
  2. ASPIRIN [Suspect]
  3. NOVOLOG [Suspect]
     Indication: TYPE 2 DIABETES MELLITUS
     Dosage: 36 INTERNATIONAL UNIT
  4. PLACEBO [Suspect]
     Indication: TYPE 2 DIABETES MELLITUS
     Dosage: UNK
     Dates: start: 20110118
  5. COUMADIN [Suspect]
  6. HEPARIN [Concomitant]
  7. EPTIFIBATIDE [Concomitant]
  8. LANTUS [Suspect]
     Indication: TYPE 2 DIABETES MELLITUS
     Dosage: 50 INTERNATIONAL UNIT
  9. SAXAGLIPTIN [Suspect]
     Indication: TYPE 2 DIABETES MELLITUS
     Dosage: UNK
     Dates: start: 20110118
  10. CLOPIDOGREL BISULFATE [Suspect]

REACTIONS (3)
  - TRANSITIONAL CELL CARCINOMA [None]
  - URETHRAL POLYP [None]
  - HAEMATURIA [None]
